FAERS Safety Report 6245798-5 (Version None)
Quarter: 2009Q2

REPORT INFORMATION
  Report Type: 
  Country: None (occurrence: None)
  Receive Date: 20090624
  Receipt Date: 20090619
  Transmission Date: 20091009
  Serious: Yes (Hospitalization)
  Sender: FDA-Public Use
  Company Number: 2009007378

PATIENT
  Age: 22 Year
  Sex: Male

DRUGS (6)
  1. PROVIGIL [Suspect]
     Dosage: ORAL
     Route: 048
     Dates: start: 20070101
  2. BOTOX [Suspect]
     Indication: TEMPOROMANDIBULAR JOINT SYNDROME
  3. MS CONTIN [Concomitant]
  4. VALIUM [Concomitant]
  5. NAPROXEN [Concomitant]
  6. EFFEXOR [Concomitant]

REACTIONS (1)
  - ANAPHYLACTIC REACTION [None]
